FAERS Safety Report 4396453-8 (Version None)
Quarter: 2004Q3

REPORT INFORMATION
  Report Type: 
  Country: None (occurrence: None)
  Receive Date: 20040709
  Receipt Date: 20040622
  Transmission Date: 20050211
  Serious: Yes (Death)
  Sender: FDA-Public Use
  Company Number: 8289

PATIENT
  Age: 66 Year
  Sex: Male

DRUGS (4)
  1. LEUCOVORIN CALCIUM [Suspect]
     Indication: CHORIOCARCINOMA
     Dosage: 15 MG DAILY INJ
  2. METHOTREXATE [Concomitant]
  3. ETOPOSIDE [Concomitant]
  4. ACTINOMYCIN [Concomitant]

REACTIONS (1)
  - HEPATIC FAILURE [None]
